FAERS Safety Report 7244101-1 (Version None)
Quarter: 2011Q1

REPORT INFORMATION
  Report Type: 
  Country: None (occurrence: None)
  Receive Date: 20110119
  Receipt Date: 20110119
  Transmission Date: 20110831
  Serious: Yes (Hospitalization)
  Sender: FDA-Public Use
  Company Number: None

PATIENT
  Age: 67 Year
  Sex: Female
  Weight: 99.7913 kg

DRUGS (1)
  1. MULTAQ [Suspect]
     Indication: ARRHYTHMIA
     Dosage: 40MG BID PO
     Route: 048
     Dates: start: 20101220, end: 20110114

REACTIONS (4)
  - MENTAL STATUS CHANGES [None]
  - ARRHYTHMIA [None]
  - HYPOTENSION [None]
  - DRUG INTERACTION [None]
